FAERS Safety Report 4899951-3 (Version None)
Quarter: 2006Q1

REPORT INFORMATION
  Report Type: 
  Country: None (occurrence: None)
  Receive Date: 20060201
  Receipt Date: 20060117
  Transmission Date: 20060701
  Serious: Yes (Other)
  Sender: FDA-Public Use
  Company Number: US200601003397

PATIENT
  Age: 38 Year
  Sex: Female

DRUGS (2)
  1. CYMBALTA [Suspect]
  2. TOPAMAX /AUS/ (TOPIRAMATE) [Concomitant]

REACTIONS (1)
  - GRAND MAL CONVULSION [None]
